FAERS Safety Report 4591654-8 (Version None)
Quarter: 2005Q1

REPORT INFORMATION
  Report Type: 
  Country: None (occurrence: None)
  Receive Date: 20050218
  Receipt Date: 20050208
  Transmission Date: 20050727
  Serious: Yes (Hospitalization, Other)
  Sender: FDA-Public Use
  Company Number: 2004240918GB

PATIENT
  Age: 54 Year
  Sex: Female

DRUGS (4)
  1. GENOTROPIN [Suspect]
     Indication: HYPOPITUITARISM
     Dosage: 0.4 MG (1 IN 1 D), SUBCUTANEOUS
     Route: 058
     Dates: start: 19961206, end: 20050113
  2. GENOTROPIN [Suspect]
     Indication: HYPOPITUITARISM
     Dosage: 0.4 MG (1 IN 1 D), SUBCUTANEOUS
     Route: 058
     Dates: start: 20040704
  3. LEVOTHYROXINE SODIUM [Concomitant]
  4. HYDROCORTISONE [Concomitant]

REACTIONS (2)
  - METASTATIC SQUAMOUS CELL CARCINOMA [None]
  - NECK MASS [None]
